FAERS Safety Report 18853162 (Version 2)
Quarter: 2021Q1

REPORT INFORMATION
  Report Type: Spontaneous
  Country: US (occurrence: US)
  Receive Date: 20210205
  Receipt Date: 20210312
  Transmission Date: 20210420
  Serious: Yes (Other)
  Sender: FDA-Public Use
  Company Number: US-BAYER-2021-050666

PATIENT
  Age: 23 Year
  Sex: Female
  Weight: 89.8 kg

DRUGS (6)
  1. SKYLA [Suspect]
     Active Substance: LEVONORGESTREL
     Indication: CONTRACEPTION
     Dosage: 14 ?G PER DAY CONTINUOUSLY
     Route: 015
     Dates: start: 20201222, end: 20210128
  2. PRENATAL VITAMINS [MINERALS NOS;VITAMINS NOS] [Concomitant]
     Active Substance: MINERALS\VITAMINS
  3. SKYLA [Suspect]
     Active Substance: LEVONORGESTREL
     Indication: CONTRACEPTION
     Dosage: 14 ?G PER DAY CONTINUOUSLY
     Route: 015
     Dates: start: 20210208
  4. NAPROXEN. [Concomitant]
     Active Substance: NAPROXEN
  5. MIDOL COMPLETE [Concomitant]
     Active Substance: ACETAMINOPHEN\CAFFEINE\PYRILAMINE MALEATE
  6. FOLIC ACID. [Concomitant]
     Active Substance: FOLIC ACID

REACTIONS (1)
  - Device dislocation [Recovered/Resolved]

NARRATIVE: CASE EVENT DATE: 20210128
